FAERS Safety Report 15127583 (Version 1)
Quarter: 2018Q3

REPORT INFORMATION
  Report Type: Spontaneous
  Country: US (occurrence: US)
  Receive Date: 20180710
  Receipt Date: 20180710
  Transmission Date: 20181010
  Serious: Yes (Life-Threatening, Hospitalization, Other)
  Sender: FDA-Public Use
  Company Number: US-UNITED THERAPEUTICS-UNT-2018-010170

PATIENT
  Age: 47 Year
  Sex: Female

DRUGS (1)
  1. REMODULIN [Suspect]
     Active Substance: TREPROSTINIL
     Indication: PULMONARY ARTERIAL HYPERTENSION
     Route: 041

REACTIONS (7)
  - Accidental overdose [Unknown]
  - Sepsis [Recovering/Resolving]
  - Medication error [Unknown]
  - Acute pulmonary oedema [Unknown]
  - Device related infection [Unknown]
  - Respiratory distress [Unknown]
  - Device alarm issue [Unknown]
